FAERS Safety Report 7755634-3 (Version None)
Quarter: 2011Q3

REPORT INFORMATION
  Report Type: 
  Country: None (occurrence: None)
  Receive Date: 20110916
  Receipt Date: 20110908
  Transmission Date: 20111222
  Serious: Yes (Hospitalization)
  Sender: FDA-Public Use
  Company Number: AU-JNJFOC-20110904222

PATIENT
  Sex: Male

DRUGS (20)
  1. MELIZIDE [Concomitant]
  2. PROGOUT [Concomitant]
  3. STELARA [Suspect]
     Route: 058
     Dates: start: 20100416
  4. STELARA [Suspect]
     Route: 058
     Dates: start: 20101223
  5. STELARA [Suspect]
     Route: 058
     Dates: start: 20110627
  6. FERRO-GRADUMET [Concomitant]
  7. STELARA [Suspect]
     Route: 058
     Dates: start: 20100709
  8. ACCUPRIL [Concomitant]
  9. HYDRENE [Concomitant]
  10. WARFARIN SODIUM [Concomitant]
  11. STELARA [Suspect]
     Route: 058
     Dates: start: 20110328
  12. PRAVACHOL [Concomitant]
  13. ATACAND [Concomitant]
  14. STELARA [Suspect]
     Route: 058
     Dates: start: 20101004
  15. METFORMIN HCL [Concomitant]
  16. LEVOTHYROXINE SODIUM [Concomitant]
  17. PANTOPRAZOLE [Concomitant]
  18. STELARA [Suspect]
     Indication: PSORIASIS
     Route: 058
     Dates: start: 20100319
  19. TRAMADOL HYDROCHLORIDE [Concomitant]
  20. METOPROLOL TARTRATE [Concomitant]

REACTIONS (1)
  - PNEUMONIA [None]
